FAERS Safety Report 7527872-6 (Version None)
Quarter: 2011Q2

REPORT INFORMATION
  Report Type: 
  Country: None (occurrence: None)
  Receive Date: 20110607
  Receipt Date: 20110601
  Transmission Date: 20111010
  Serious: Yes (Death)
  Sender: FDA-Public Use
  Company Number: US-ASTELLAS-2011US002711

PATIENT
  Sex: Male

DRUGS (2)
  1. PROGRAF [Suspect]
     Indication: LUNG TRANSPLANT
     Dosage: 0.5 MG, UNKNOWN/D
     Route: 065
     Dates: start: 20100201, end: 20110512
  2. PROGRAF [Suspect]
     Dosage: 7 MG, BID
     Route: 048
     Dates: start: 20100201, end: 20110512

REACTIONS (2)
  - OFF LABEL USE [None]
  - DEATH [None]
